FAERS Safety Report 8807574 (Version 1)
Quarter: 2012Q4

REPORT INFORMATION
  Report Type: 
  Country: US (occurrence: US)
  Receive Date: 20120925
  Receipt Date: 20120925
  Transmission Date: 20130627
  Serious: Yes (Death, Other)
  Sender: FDA-Public Use
  Company Number: US-PFIZER INC-2012233315

PATIENT
  Age: 59 Year
  Sex: Female

DRUGS (1)
  1. INLYTA [Suspect]
     Indication: MALIGNANT NEOPLASM OF RENAL PELVIS
     Dosage: 5 mg, 2x/day
     Route: 048
     Dates: start: 20120810, end: 20120903

REACTIONS (1)
  - Death [Fatal]
